FAERS Safety Report 7822633-2 (Version None)
Quarter: 2011Q4

REPORT INFORMATION
  Report Type: 
  Country: None (occurrence: None)
  Receive Date: 20111018
  Receipt Date: 20111003
  Transmission Date: 20120403
  Serious: Yes (Other)
  Sender: FDA-Public Use
  Company Number: IT-WATSON-2011-16526

PATIENT
  Age: 12 Month
  Sex: Female

DRUGS (4)
  1. ETOPOSIDE [Suspect]
     Indication: CHEMOTHERAPY
  2. ETOPOSIDE [Suspect]
     Indication: NEUROBLASTOMA
     Dosage: 4 COURSES INITIALLY THEN 14 COURSES OF CHEMOTHERAPY 10 MONTHS AFTER INITIAL
  3. CARBOPLATIN [Suspect]
     Indication: CHEMOTHERAPY
  4. CARBOPLATIN [Suspect]
     Indication: NEUROBLASTOMA
     Dosage: 4 COURSES OF CHEMOTHERAPY FOLLOWED BY 14 MORE COURSES AFTER 10 MONTHS

REACTIONS (8)
  - OESOPHAGEAL DYSPLASIA [None]
  - GASTROOESOPHAGEAL REFLUX DISEASE [None]
  - MUCOSAL INFLAMMATION [None]
  - VOMITING [None]
  - OESOPHAGITIS [None]
  - HAEMATEMESIS [None]
  - DYSPEPSIA [None]
  - ABDOMINAL PAIN UPPER [None]
